FAERS Safety Report 4464615-7 (Version None)
Quarter: 2004Q3

REPORT INFORMATION
  Report Type: 
  Country: None (occurrence: None)
  Receive Date: 20040927
  Receipt Date: 20040913
  Transmission Date: 20050211
  Serious: Yes (Other)
  Sender: FDA-Public Use
  Company Number: 2004062149

PATIENT
  Age: 43 Year
  Weight: 52 kg

DRUGS (1)
  1. ZOLOFT [Suspect]
     Indication: DEPRESSION
     Dosage: 50 MG (50 MG, 1 IN D), ORAL
     Route: 048
     Dates: start: 20031208, end: 20040528

REACTIONS (5)
  - ABSCESS INTESTINAL [None]
  - COLITIS [None]
  - CROHN'S DISEASE [None]
  - EXTRAVASATION [None]
  - LYMPHOID TISSUE HYPERPLASIA [None]
